FAERS Safety Report 4911753-8 (Version None)
Quarter: 2006Q1

REPORT INFORMATION
  Report Type: 
  Country: None (occurrence: None)
  Receive Date: 20060215
  Receipt Date: 20060209
  Transmission Date: 20060701
  Serious: Yes (Other)
  Sender: FDA-Public Use
  Company Number: PHEH2006US01922

PATIENT
  Age: 56 Year
  Sex: Female

DRUGS (5)
  1. LAMISIL [Suspect]
     Route: 048
  2. LABETALOL HCL [Concomitant]
     Indication: GLAUCOMA
  3. ASPIRIN [Concomitant]
  4. PREMPRO [Concomitant]
  5. BLACK COHOSH [Concomitant]

REACTIONS (21)
  - ANGINA UNSTABLE [None]
  - ANXIETY [None]
  - ARRHYTHMIA [None]
  - ATRIOVENTRICULAR BLOCK [None]
  - BACK PAIN [None]
  - BUNDLE BRANCH BLOCK LEFT [None]
  - CARDIOMYOPATHY [None]
  - CONDUCTION DISORDER [None]
  - DIZZINESS [None]
  - ELECTROCARDIOGRAM REPOLARISATION ABNORMALITY [None]
  - ELECTROCARDIOGRAM T WAVE INVERSION [None]
  - EXTRASYSTOLES [None]
  - HYPOAESTHESIA [None]
  - INSOMNIA [None]
  - ISCHAEMIA [None]
  - MENOPAUSAL SYMPTOMS [None]
  - MITRAL VALVE PROLAPSE [None]
  - PALPITATIONS [None]
  - REFLUX OESOPHAGITIS [None]
  - SUPRAVENTRICULAR TACHYCARDIA [None]
  - VENTRICULAR EXTRASYSTOLES [None]
